FAERS Safety Report 7629336-8 (Version None)
Quarter: 2011Q3

REPORT INFORMATION
  Report Type: 
  Country: None (occurrence: None)
  Receive Date: 20110722
  Receipt Date: 20110426
  Transmission Date: 20111222
  Serious: Yes (Hospitalization)
  Sender: FDA-Public Use
  Company Number: GB-BAYER-2011-045380

PATIENT
  Age: 29 Year
  Sex: Male

DRUGS (1)
  1. ACETAMINOPHEN [Suspect]
     Indication: ANALGESIC THERAPY

REACTIONS (2)
  - PAIN [None]
  - GENITAL ULCERATION [None]
